FAERS Safety Report 7477086-3 (Version None)
Quarter: 2011Q2

REPORT INFORMATION
  Report Type: 
  Country: None (occurrence: None)
  Receive Date: 20110512
  Receipt Date: 20110502
  Transmission Date: 20111010
  Serious: Yes (Death, Other)
  Sender: FDA-Public Use
  Company Number: US-MILLENNIUM PHARMACEUTICALS, INC.-2011-01777

PATIENT
  Age: 45 Year
  Sex: Male

DRUGS (2)
  1. CISPLATIN [Suspect]
     Indication: HEAD AND NECK CANCER
  2. VELCADE [Suspect]
     Indication: HEAD AND NECK CANCER
     Dosage: UNK

REACTIONS (3)
  - TRACHEAL INFLAMMATION [None]
  - DISEASE PROGRESSION [None]
  - PHARYNGEAL HAEMORRHAGE [None]
